FAERS Safety Report 9568641 (Version 2)
Quarter: 2013Q3

REPORT INFORMATION
  Report Type: Spontaneous
  Country: US (occurrence: US)
  Receive Date: 20130930
  Receipt Date: 20130930
  Transmission Date: 20140515
  Serious: No
  Sender: FDA-Public Use
  Company Number: US-AMGEN-USASP2013052319

PATIENT
  Age: 68 Year
  Sex: Female
  Weight: 83.9 kg

DRUGS (3)
  1. ENBREL [Suspect]
     Indication: PSORIASIS
     Dosage: 50 MG, 2 TIMES/WK
     Route: 058
     Dates: start: 20130322, end: 20130618
  2. HYDROXYUREA [Concomitant]
     Dosage: 5 G, UNK
     Route: 048
  3. STELARA [Concomitant]
     Dosage: 45 MG, UNK
     Route: 058
     Dates: start: 20130702

REACTIONS (2)
  - Arthritis [Unknown]
  - Psoriasis [Not Recovered/Not Resolved]
